FAERS Safety Report 10530716 (Version 4)
Quarter: 2015Q3

REPORT INFORMATION
  Report Type: Spontaneous
  Country: US (occurrence: US)
  Receive Date: 20141021
  Receipt Date: 20150722
  Transmission Date: 20151125
  Serious: Yes (Other)
  Sender: FDA-Public Use
  Company Number: US-PFIZER INC-2014284662

PATIENT
  Age: 50 Year
  Sex: Male
  Weight: 118 kg

DRUGS (12)
  1. KLOR-CON [Concomitant]
     Active Substance: POTASSIUM CHLORIDE
     Dosage: 20 MEQ, 1X/DAY (1 TABLET BY ORAL ROUTE WITH FOOD 1 TIME PER DAY)
     Route: 048
     Dates: start: 20140920
  2. METFORMIN [Concomitant]
     Active Substance: METFORMIN HYDROCHLORIDE
     Dosage: 1000 MG, 2X/DAY (1 TABLET 2 TIMES PER DAY WITH MORNING AND EVENING MEALS)
     Route: 048
     Dates: start: 20140920
  3. VIAGRA [Suspect]
     Active Substance: SILDENAFIL CITRATE
     Indication: ERECTILE DYSFUNCTION
     Dosage: 100 MG, MAY BE ONCE OR TWICE A WEEK
  4. NOVOLOG [Concomitant]
     Active Substance: INSULIN ASPART
     Dosage: INJECT 10-15 UNITS BY SUBCUTANEOUS ROUTE AS PER INSULIN SLIDING SCALE PROTOCOL, 3 TIMES PER DAY
     Route: 058
     Dates: start: 20130717
  5. VIAGRA [Suspect]
     Active Substance: SILDENAFIL CITRATE
     Dosage: 50 MG, AS NEEDED (ONCE DAILY AS NEEDED APPROXIMATELY 1 HOUR + BEFORE SEXUAL ACTIVITY)
     Route: 048
     Dates: start: 20130912
  6. LOVASTATIN. [Concomitant]
     Active Substance: LOVASTATIN
     Dosage: 40 MG, 1X/DAY (ONCE DAILY WITH THE EVENING MEAL)
     Route: 048
     Dates: start: 20140920
  7. ANDROGEL [Concomitant]
     Active Substance: TESTOSTERONE
     Dosage: APPLY 1 PACKET BY TOPICAL ROUTE, ONCE DAILY
     Route: 061
  8. PRAVASTATIN [Concomitant]
     Active Substance: PRAVASTATIN\PRAVASTATIN SODIUM
     Dosage: TAKE 1 TABLET (40 MG), ONCE DAILY.
     Route: 048
  9. HYDROCHLOROTHIAZIDE, LISINOPRIL [Concomitant]
     Active Substance: HYDROCHLOROTHIAZIDE\LISINOPRIL
     Indication: HYPERTENSION
     Dosage: ^10/12.5MG^ ONCE A DAY
     Route: 048
     Dates: start: 20140920
  10. NAPROSYN [Concomitant]
     Active Substance: NAPROXEN
     Dosage: 1 TABLET (500 MG), EVERY 12 HOURS WITH FOOD
     Route: 048
     Dates: start: 20140920
  11. MELOXICAM. [Concomitant]
     Active Substance: MELOXICAM
     Dosage: 15 MG, 1X/DAY
     Route: 048
     Dates: start: 20140812
  12. LEVEMIR [Concomitant]
     Active Substance: INSULIN DETEMIR
     Dosage: INJECT 35 UNITS BY SUBCUTANEOUS ROUTE AS PER INSULIN SLIDING SCALE PROTOCOL, 1 TIME PER DAY
     Route: 058
     Dates: start: 20130717

REACTIONS (11)
  - Joint range of motion decreased [Unknown]
  - Blood pressure diastolic increased [Unknown]
  - Rotator cuff syndrome [Unknown]
  - Dyspnoea [Unknown]
  - Back pain [Unknown]
  - Muscular weakness [Unknown]
  - Fatigue [Unknown]
  - Upper respiratory tract infection [Unknown]
  - Blood pressure systolic increased [Unknown]
  - Feeling abnormal [Unknown]
  - Vision blurred [Unknown]
